FAERS Safety Report 7068002-7 (Version None)
Quarter: 2010Q4

REPORT INFORMATION
  Report Type: 
  Country: None (occurrence: None)
  Receive Date: 20101028
  Receipt Date: 20100819
  Transmission Date: 20110411
  Serious: No
  Sender: FDA-Public Use
  Company Number: US-MYLANLABS-2010S1014106

PATIENT
  Age: 69 Year
  Sex: Male

DRUGS (7)
  1. TAMSULOSIN HCL [Suspect]
     Indication: PROSTATOMEGALY
     Route: 048
     Dates: start: 20100630, end: 20100730
  2. LEVOTHYROXINE [Concomitant]
     Indication: THYROIDECTOMY
  3. LEVOTHYROXINE [Concomitant]
  4. HYDROX [Concomitant]
  5. SIMVASTATIN [Concomitant]
     Indication: BLOOD CHOLESTEROL INCREASED
     Dates: start: 20100501
  6. VITAMINS [Concomitant]
  7. FISH OIL [Concomitant]

REACTIONS (2)
  - DRUG EFFECT DECREASED [None]
  - URINE OUTPUT DECREASED [None]
